FAERS Safety Report 4545971-8 (Version None)
Quarter: 2005Q1

REPORT INFORMATION
  Report Type: 
  Country: None (occurrence: None)
  Receive Date: 20050105
  Receipt Date: 20050105
  Transmission Date: 20050727
  Serious: Yes (Death)
  Sender: FDA-Public Use
  Company Number: None

PATIENT
  Age: 77 Year
  Sex: Male

DRUGS (3)
  1. WARFARIN [Suspect]
     Indication: DEEP VEIN THROMBOSIS
     Dates: start: 20040920, end: 20041004
  2. WARFARIN [Suspect]
     Indication: PULMONARY EMBOLISM
     Dates: start: 20040920, end: 20041004
  3. LEXAPRO [Concomitant]

REACTIONS (3)
  - FALL [None]
  - HYDROCEPHALUS [None]
  - INTRAVENTRICULAR HAEMORRHAGE [None]
